FAERS Safety Report 9166557 (Version 2)
Quarter: 2013Q2

REPORT INFORMATION
  Report Type: Spontaneous
  Country: US (occurrence: US)
  Receive Date: 20130315
  Receipt Date: 20130417
  Transmission Date: 20140414
  Serious: Yes (Other)
  Sender: FDA-Public Use
  Company Number: US-AMGEN-USASP2013016602

PATIENT
  Age: 61 Year
  Sex: Female
  Weight: 61.6 kg

DRUGS (6)
  1. PROLIA [Suspect]
     Indication: OSTEOPOROSIS POSTMENOPAUSAL
     Dosage: UNK UNK, Q6MO
     Route: 058
     Dates: start: 20101222
  2. CALCIUM [Concomitant]
     Indication: OSTEOPOROSIS
     Dosage: 600 MG, BID
     Route: 048
  3. VITAMIN D3 [Concomitant]
     Indication: OSTEOPOROSIS
     Dosage: 5000 IU, QHS
     Route: 048
  4. ESTRACE [Concomitant]
     Indication: ATROPHIC VULVOVAGINITIS
     Dosage: 0.5 MG, QWK
     Route: 067
  5. NIACIN [Concomitant]
     Dosage: 500 MG, BID
     Route: 048
  6. FISH OIL [Concomitant]
     Dosage: 1200 MG, UNK
     Route: 048

REACTIONS (3)
  - Wrist fracture [Unknown]
  - Fall [Unknown]
  - Humerus fracture [Recovering/Resolving]
